FAERS Safety Report 9656801 (Version 1)
Quarter: 2013Q4

REPORT INFORMATION
  Report Type: Spontaneous
  Country: US (occurrence: None)
  Receive Date: 20131029
  Receipt Date: 20131029
  Transmission Date: 20140711
  Serious: No
  Sender: FDA-Public Use
  Company Number: None

PATIENT
  Age: 57 Year
  Sex: Male

DRUGS (1)
  1. LINACLOTIDE [Suspect]
     Indication: CONSTIPATION
     Dates: end: 20130630

REACTIONS (3)
  - Lip swelling [None]
  - Pruritus [None]
  - Swelling face [None]
